FAERS Safety Report 21176743 (Version 2)
Quarter: 2022Q3

REPORT INFORMATION
  Report Type: Spontaneous
  Country: US (occurrence: US)
  Receive Date: 20220805
  Receipt Date: 20220823
  Transmission Date: 20221026
  Serious: Yes (Other)
  Sender: FDA-Public Use
  Company Number: US-UCBSA-2022023591

PATIENT
  Sex: Female
  Weight: 86 kg

DRUGS (1)
  1. CIMZIA [Suspect]
     Active Substance: CERTOLIZUMAB PEGOL
     Indication: Rheumatoid arthritis
     Dosage: 400 MILLIGRAM, EV 4 WEEKS
     Route: 058
     Dates: start: 202104, end: 2022

REACTIONS (5)
  - Bronchitis [Unknown]
  - Headache [Unknown]
  - Eye pain [Unknown]
  - Neck pain [Unknown]
  - Therapy interrupted [Unknown]
